FAERS Safety Report 7001790-4 (Version None)
Quarter: 2010Q3

REPORT INFORMATION
  Report Type: 
  Country: None (occurrence: None)
  Receive Date: 20100920
  Receipt Date: 20070926
  Transmission Date: 20110219
  Serious: No
  Sender: FDA-Public Use
  Company Number: US-ASTRAZENECA-2006UW22069

PATIENT
  Age: 13815 Day
  Sex: Female
  Weight: 127.9 kg

DRUGS (13)
  1. SEROQUEL [Suspect]
     Indication: DEPRESSION
     Route: 048
     Dates: start: 19980630
  2. SEROQUEL [Suspect]
     Indication: SLEEP DISORDER
     Route: 048
     Dates: start: 19980630
  3. SEROQUEL [Suspect]
     Indication: AGITATION
     Route: 048
     Dates: start: 19980630
  4. SEROQUEL [Suspect]
     Indication: PANIC DISORDER
     Route: 048
     Dates: start: 19980630
  5. SEROQUEL [Suspect]
     Route: 048
     Dates: start: 19981230, end: 20050101
  6. SEROQUEL [Suspect]
     Route: 048
     Dates: start: 19981230, end: 20050101
  7. SEROQUEL [Suspect]
     Route: 048
     Dates: start: 19981230, end: 20050101
  8. SEROQUEL [Suspect]
     Route: 048
     Dates: start: 19981230, end: 20050101
  9. PAXIL [Concomitant]
     Dates: start: 19980630
  10. NEURONTIN [Concomitant]
     Indication: PAIN
     Dosage: 400MG -2400MG
     Dates: start: 19980630
  11. LIPITOR [Concomitant]
     Indication: HYPERCHOLESTEROLAEMIA
     Dates: start: 20020101
  12. CELEXA [Concomitant]
     Dosage: 20-40MG
     Dates: start: 19990813
  13. EFFEXOR [Concomitant]
     Dosage: 37.5 - 75MG PER DAY
     Dates: start: 19980629

REACTIONS (7)
  - BLOOD CHOLESTEROL INCREASED [None]
  - DIABETES MELLITUS [None]
  - GLUCOSE TOLERANCE IMPAIRED [None]
  - GLYCOSURIA [None]
  - HYPERCHOLESTEROLAEMIA [None]
  - OBESITY [None]
  - TYPE 2 DIABETES MELLITUS [None]
